FAERS Safety Report 17839759 (Version 1)
Quarter: 2020Q2

REPORT INFORMATION
  Report Type: Spontaneous
  Country: US (occurrence: US)
  Receive Date: 20200529
  Receipt Date: 20200529
  Transmission Date: 20200714
  Serious: Yes (Hospitalization)
  Sender: FDA-Public Use
  Company Number: US-B.I. PHARMACEUTICALS,INC./RIDGEFIELD-2020-US-026265

PATIENT
  Age: 87 Year
  Sex: Male

DRUGS (1)
  1. TRADJENTA [Suspect]
     Active Substance: LINAGLIPTIN
     Indication: TYPE 2 DIABETES MELLITUS
     Dosage: 5 MG DAILY
     Route: 065
     Dates: start: 202002

REACTIONS (8)
  - Agitation [Unknown]
  - Decreased appetite [Unknown]
  - Restlessness [Unknown]
  - Cardiac failure congestive [Recovered/Resolved]
  - Aggression [Unknown]
  - Abnormal loss of weight [Recovered/Resolved]
  - COVID-19 [Unknown]
  - Delirium [Unknown]

NARRATIVE: CASE EVENT DATE: 202002
